FAERS Safety Report 5540660-5 (Version None)
Quarter: 2007Q4

REPORT INFORMATION
  Report Type: 
  Country: None (occurrence: None)
  Receive Date: 20071129
  Receipt Date: 20070831
  Transmission Date: 20080405
  Serious: Yes (Other)
  Sender: FDA-Public Use
  Company Number: US200708007117

PATIENT
  Age: 26 Year
  Sex: Male
  Weight: 93.9 kg

DRUGS (3)
  1. ZYPREXA [Suspect]
     Indication: OBSESSIVE-COMPULSIVE PERSONALITY DISORDER
     Dosage: 10 MG,
     Dates: start: 20000101
  2. FAMOTIDINE [Concomitant]
  3. KLONOPIN [Concomitant]

REACTIONS (4)
  - GASTROOESOPHAGEAL REFLUX DISEASE [None]
  - HIATUS HERNIA [None]
  - INCREASED APPETITE [None]
  - WEIGHT INCREASED [None]
